FAERS Safety Report 12170413 (Version 1)
Quarter: 2016Q1

REPORT INFORMATION
  Report Type: Spontaneous
  Country: JP (occurrence: JP)
  Receive Date: 20160311
  Receipt Date: 20160311
  Transmission Date: 20160526
  Serious: Yes (Life-Threatening)
  Sender: FDA-Public Use
  Company Number: JP-ROCHE-1711861

PATIENT
  Age: 49 Year
  Sex: Female
  Weight: 63 kg

DRUGS (2)
  1. AVASTIN [Suspect]
     Active Substance: BEVACIZUMAB
     Indication: FALLOPIAN TUBE CANCER
     Dosage: TREATMENT LINE: 4TH
     Route: 041
     Dates: start: 20151111, end: 20160106
  2. TSUMURA GOSHAJINKIGAN [Concomitant]
     Active Substance: HERBALS
     Dosage: AMOUNT 2.5 OF 1 ONCE ADMINISTRATION (UNIT UNCERTAINTY)?REPORTED AS TSUMURA GOSHAJINKIGAN EXTRACT GRA
     Route: 048
     Dates: start: 20150626

REACTIONS (5)
  - Hypertension [Recovering/Resolving]
  - Shock haemorrhagic [Recovering/Resolving]
  - Duodenal ulcer haemorrhage [Recovering/Resolving]
  - Gastrointestinal haemorrhage [Recovering/Resolving]
  - Gastrointestinal telangiectasia [Recovering/Resolving]

NARRATIVE: CASE EVENT DATE: 20151215
